FAERS Safety Report 5831043-9 (Version None)
Quarter: 2008Q3

REPORT INFORMATION
  Report Type: 
  Country: None (occurrence: None)
  Receive Date: 20080801
  Receipt Date: 20080318
  Transmission Date: 20090109
  Serious: Yes (Hospitalization, Other)
  Sender: FDA-Public Use
  Company Number: US-BRISTOL-MYERS SQUIBB COMPANY-14119168

PATIENT
  Age: 69 Year
  Sex: Male
  Weight: 86 kg

DRUGS (12)
  1. COUMADIN [Suspect]
     Indication: CORONARY ARTERY BYPASS
     Dates: start: 19960101
  2. COUMADIN [Suspect]
     Indication: STENT PLACEMENT
     Dates: start: 19960101
  3. WARFARIN SODIUM [Suspect]
  4. PLAVIX [Suspect]
     Dates: start: 19960101
  5. ASPIRIN [Concomitant]
     Dates: start: 19960101
  6. PREVACID [Concomitant]
     Dosage: DURATION IS 7 TO 8 YEARS.
  7. ATENOLOL [Concomitant]
     Dosage: STOPPED 2 MONTHS AGO.
     Dates: start: 19850101, end: 20080101
  8. COREG [Concomitant]
     Dosage: STARTED 2 MONTHS AGO.
     Dates: start: 20080101
  9. RAMIPRIL [Concomitant]
     Dosage: STARTED 2 MONTHS AGO.
     Dates: start: 20080101
  10. PAXIL [Concomitant]
     Dates: start: 20030101
  11. VYTORIN [Concomitant]
     Dosage: 1 DOSAGE FORM= 10/20 MG
  12. ZOCOR [Concomitant]
     Dates: start: 19960101

REACTIONS (2)
  - CEREBRAL THROMBOSIS [None]
  - INTERNATIONAL NORMALISED RATIO FLUCTUATION [None]
